FAERS Safety Report 17883055 (Version 1)
Quarter: 2020Q2

REPORT INFORMATION
  Report Type: Spontaneous
  Country: US (occurrence: US)
  Receive Date: 20200611
  Receipt Date: 20200611
  Transmission Date: 20200714
  Serious: No
  Sender: FDA-Public Use
  Company Number: US-ASTRAZENECA-2020SE73596

PATIENT
  Age: 999 Month
  Sex: Female
  Weight: 65.8 kg

DRUGS (3)
  1. XIGDUO XR [Suspect]
     Active Substance: DAPAGLIFLOZIN PROPANEDIOL\METFORMIN HYDROCHLORIDE
     Indication: GLYCOSYLATED HAEMOGLOBIN
     Dosage: 10/1000 MG DAILY
     Route: 048
  2. XIGDUO XR [Suspect]
     Active Substance: DAPAGLIFLOZIN PROPANEDIOL\METFORMIN HYDROCHLORIDE
     Indication: GLYCOSYLATED HAEMOGLOBIN
     Dosage: 10/1000 MG DAILY
     Route: 048
     Dates: start: 202002, end: 20200601
  3. BYDUREON BCISE [Suspect]
     Active Substance: EXENATIDE
     Indication: GLYCOSYLATED HAEMOGLOBIN
     Route: 058
     Dates: start: 202002, end: 20200505

REACTIONS (8)
  - Carbon dioxide abnormal [Not Recovered/Not Resolved]
  - Confusional state [Unknown]
  - Glomerular filtration rate decreased [Not Recovered/Not Resolved]
  - Blood creatinine decreased [Not Recovered/Not Resolved]
  - Weight decreased [Not Recovered/Not Resolved]
  - Constipation [Unknown]
  - Renal impairment [Not Recovered/Not Resolved]
  - Blood urea decreased [Not Recovered/Not Resolved]

NARRATIVE: CASE EVENT DATE: 202002
